FAERS Safety Report 10172131 (Version 2)
Quarter: 2014Q2

REPORT INFORMATION
  Report Type: Spontaneous
  Country: DE (occurrence: DE)
  Receive Date: 20140515
  Receipt Date: 20140515
  Transmission Date: 20141212
  Serious: Yes (Other)
  Sender: FDA-Public Use
  Company Number: PHHY2014DE022005

PATIENT
  Age: 62 Year
  Sex: Female
  Weight: 80 kg

DRUGS (11)
  1. TASIGNA [Suspect]
     Indication: CHRONIC MYELOID LEUKAEMIA
     Dosage: 600 MG, DAILY
     Dates: start: 20131016
  2. METFORMIN [Concomitant]
     Dosage: 2 DF, UNK
  3. L-THYROXIN [Concomitant]
     Dosage: 1 DF, UNK
  4. BISOPROLOL [Concomitant]
  5. REPAGLINIDE [Concomitant]
     Dosage: 3 DF, UNK
  6. FLUOXETIN [Concomitant]
     Dosage: 2 DF, IN MORNING
  7. VALPROATE [Concomitant]
     Dosage: 2 DF, IN EVENING
  8. CO-APROVEL [Concomitant]
     Dosage: 1 DF, IN MORNING
  9. NITRENDIPINE [Concomitant]
     Dosage: 1 DF, UNK
  10. ZIPRASIDONE [Concomitant]
     Dosage: 2 DF, 1 DF IN MORNING AND 1 DF IN EVENING
  11. OXAZEPAM [Concomitant]

REACTIONS (1)
  - Neurodermatitis [Recovering/Resolving]
